FAERS Safety Report 12281895 (Version 1)
Quarter: 2016Q2

REPORT INFORMATION
  Report Type: Spontaneous
  Country: CN (occurrence: CN)
  Receive Date: 20160419
  Receipt Date: 20160419
  Transmission Date: 20160815
  Serious: Yes (Hospitalization)
  Sender: FDA-Public Use
  Company Number: CN-PFIZER INC-2016207150

PATIENT
  Age: 75 Year
  Sex: Female
  Weight: 51 kg

DRUGS (4)
  1. VINPOCETINE [Suspect]
     Active Substance: VINPOCETINE
     Indication: ISCHAEMIA
     Dosage: 30 MG, 1X/DAY
     Route: 041
     Dates: start: 20151016, end: 20151026
  2. FLUNARIZINE HYDROCHLORIDE [Concomitant]
     Active Substance: FLUNARIZINE HYDROCHLORIDE
     Indication: ISCHAEMIA
     Dosage: 5 MG, 1X/DAY
     Route: 048
     Dates: start: 20151016, end: 20151023
  3. SODIUM CHLORIDE 0.9% [Concomitant]
     Active Substance: SODIUM CHLORIDE
     Indication: CARDIOVASCULAR DISORDER
     Dosage: 500 ML, 1X/DAY
     Route: 041
  4. LIPITOR [Suspect]
     Active Substance: ATORVASTATIN CALCIUM
     Indication: ISCHAEMIA
     Dosage: 20 MG, 1X/DAY
     Route: 048
     Dates: start: 20151016, end: 20151026

REACTIONS (4)
  - Hepatic enzyme increased [Recovering/Resolving]
  - Nausea [Unknown]
  - Vomiting [Unknown]
  - Pyrexia [Unknown]

NARRATIVE: CASE EVENT DATE: 20151026
